FAERS Safety Report 17291616 (Version 1)
Quarter: 2020Q1

REPORT INFORMATION
  Report Type: Spontaneous
  Country: CN (occurrence: CN)
  Receive Date: 20200121
  Receipt Date: 20200121
  Transmission Date: 20200409
  Serious: Yes (Life-Threatening, Hospitalization)
  Sender: FDA-Public Use
  Company Number: CN-BAYER-2020-000462

PATIENT
  Age: 57 Year
  Sex: Male
  Weight: 65 kg

DRUGS (3)
  1. ADEMETIONINE 1,4-BUTANEDISULFONATE [Concomitant]
  2. MEROPENEM. [Suspect]
     Active Substance: MEROPENEM
     Indication: URINARY TRACT INFECTION
     Dosage: 2 G, Q8HR
     Route: 041
     Dates: start: 20191211, end: 20191222
  3. CIPROBAY (CIPROFLOXACIN) [Suspect]
     Active Substance: CIPROFLOXACIN
     Indication: URINARY TRACT INFECTION
     Dosage: 0.2 G, BID
     Route: 041
     Dates: start: 20191211, end: 20191224

REACTIONS (4)
  - Haemorrhage subcutaneous [Recovered/Resolved]
  - Ecchymosis [Recovered/Resolved]
  - Thrombocytopenia [Recovered/Resolved]
  - Petechiae [Recovered/Resolved]

NARRATIVE: CASE EVENT DATE: 20191223
